FAERS Safety Report 13579787 (Version 1)
Quarter: 2017Q2

REPORT INFORMATION
  Report Type: Spontaneous
  Country: US (occurrence: US)
  Receive Date: 20170525
  Receipt Date: 20170525
  Transmission Date: 20170830
  Serious: Yes (Death, Life-Threatening, Other)
  Sender: FDA-Public Use
  Company Number: US-CLINIGEN GROUP PLC/ CLINIGEN HEALTHCARE LTD-E2B_00005425

PATIENT
  Age: 30 Year
  Sex: Male
  Weight: 53.6 kg

DRUGS (48)
  1. DEXAMETHASONE. [Concomitant]
     Active Substance: DEXAMETHASONE
     Dosage: DOSE: 1 MG TOTAL DAILY DOSE: 2 MG
     Route: 048
     Dates: start: 19950605, end: 19950607
  2. FOLINIC ACID [Concomitant]
     Active Substance: LEUCOVORIN
     Dosage: DOSE: 10 MG TOTAL DAILY DOSE: 10 MG
     Route: 048
     Dates: start: 19950503
  3. NEUPOGEN [Concomitant]
     Active Substance: FILGRASTIM
     Dosage: DOSE: 480 MCG TOTAL DAILY DOSE: 480 MCG
     Route: 058
     Dates: start: 19950517, end: 19950608
  4. PLATELETS [Concomitant]
     Active Substance: HUMAN PLATELET, ALLOGENIC
     Route: 042
     Dates: start: 19950630
  5. FOSCAVIR [Suspect]
     Active Substance: FOSCARNET SODIUM
     Dosage: TOTAL DAILY DOSE: 5500 MG
     Route: 042
     Dates: start: 19950508, end: 19950508
  6. FOSCAVIR [Suspect]
     Active Substance: FOSCARNET SODIUM
     Dosage: TOTAL DAILY DOSE: 5500 MG
     Route: 042
     Dates: start: 19950518, end: 19950518
  7. CIPRO [Concomitant]
     Active Substance: CIPROFLOXACIN HYDROCHLORIDE
     Dosage: DOSE: 500 MG TOTAL DAILY DOSE: 500 MG
     Route: 048
     Dates: start: 19950530, end: 19950609
  8. CLINDAMYCIN. [Concomitant]
     Active Substance: CLINDAMYCIN
     Dosage: DOSE: 600 MG TOTAL DAILY DOSE: 1800 MG
     Route: 042
     Dates: start: 19950504, end: 19950511
  9. FAMOTIDINE. [Concomitant]
     Active Substance: FAMOTIDINE
     Dosage: DOSE: 20 MG TOTAL DAILY DOSE: 20 MG
     Route: 042
     Dates: start: 19950514, end: 19950517
  10. OMEPRAZOLE. [Concomitant]
     Active Substance: OMEPRAZOLE
     Dosage: DOSE: 20 MG TOTAL DAILY DOSE: 20 MG
     Route: 048
     Dates: start: 19950519
  11. PYRIMETHAMINE [Concomitant]
     Active Substance: PYRIMETHAMINE
     Route: 065
     Dates: start: 19950503, end: 19950503
  12. ROBITUSSIN DM [Concomitant]
     Active Substance: DEXTROMETHORPHAN HYDROBROMIDE\GUAIFENESIN
     Dosage: DOSE: 30 ML
     Route: 065
  13. SULFASALAZINE. [Concomitant]
     Active Substance: SULFASALAZINE
     Dosage: DOSE: 1 TOTAL DAILY DOSE: 2
     Route: 048
  14. FLAGYL [Concomitant]
     Active Substance: METRONIDAZOLE\METRONIDAZOLE HYDROCHLORIDE
     Dosage: DOSE: 250 MG TOTAL DAILY DOSE: 750 MG
     Route: 048
     Dates: end: 19950510
  15. NEUPOGEN [Concomitant]
     Active Substance: FILGRASTIM
     Dosage: DOSE: 300 MCG TOTAL DAILY DOSE: 300 MCG
     Route: 058
     Dates: start: 19950630
  16. NEUPOGEN [Concomitant]
     Active Substance: FILGRASTIM
     Dosage: DOSE: 300 MCG TOTAL DAILY DOSE: 300 MCG
     Route: 058
     Dates: start: 19950514, end: 19950516
  17. ALUMINIUM CHLORIDE [Concomitant]
     Dosage: DOSE: 30 ML TOTAL DAILY DOSE: 90 ML
     Route: 048
     Dates: end: 19950519
  18. CIPRO [Concomitant]
     Active Substance: CIPROFLOXACIN HYDROCHLORIDE
     Dosage: DOSE: 400 MG TOTAL DAILY DOSE: 400 MG
     Route: 042
     Dates: end: 19950504
  19. DEXAMETHASONE. [Concomitant]
     Active Substance: DEXAMETHASONE
     Dosage: DOSE: 4 MG TOTAL DAILY DOSE: 16 MG
     Route: 048
     Dates: start: 19950503, end: 19950504
  20. DEXAMETHASONE. [Concomitant]
     Active Substance: DEXAMETHASONE
     Dosage: DOSE: 4 MG TOTAL DAILY DOSE: 16 MG
     Route: 048
     Dates: start: 19950518, end: 19950523
  21. EPOGEN [Concomitant]
     Active Substance: ERYTHROPOIETIN
     Dosage: DOSE: 10000 IU
     Route: 058
  22. MEGACE [Concomitant]
     Active Substance: MEGESTROL ACETATE
     Dosage: DOSE: 400 MG TOTAL DAILY DOSE: 800 MG
     Route: 048
     Dates: start: 19950509, end: 19950511
  23. TOBRAMYCIN. [Concomitant]
     Active Substance: TOBRAMYCIN
     Dosage: DOSE: 130 MG TOTAL DAILY DOSE: 130 MG
     Route: 042
     Dates: start: 19950523, end: 19950523
  24. FOSCAVIR [Suspect]
     Active Substance: FOSCARNET SODIUM
     Indication: CYTOMEGALOVIRUS CHORIORETINITIS
     Dosage: TOTAL DAILY DOSE: 540 MG
     Route: 042
     Dates: end: 19950507
  25. DEXAMETHASONE. [Concomitant]
     Active Substance: DEXAMETHASONE
     Dosage: DOSE: 10 MG TOTAL DAILY DOSE: 10 MG
     Route: 065
     Dates: start: 19950503, end: 19950503
  26. DEXAMETHASONE. [Concomitant]
     Active Substance: DEXAMETHASONE
     Dosage: DOSE: 4 MG TOTAL DAILY DOSE: 16 MG
     Route: 048
     Dates: start: 19950510, end: 19950515
  27. HEPARIN [Concomitant]
     Active Substance: HEPARIN SODIUM
     Dosage: DOSE: 5000 TOTAL DAILY DOSE: 10000
     Route: 058
  28. PYRIMETHAMINE [Concomitant]
     Active Substance: PYRIMETHAMINE
     Dosage: DOSE: 50 MG TOTAL DAILY DOSE: 50 MG
     Route: 048
     Dates: start: 19950503
  29. TOBRAMYCIN. [Concomitant]
     Active Substance: TOBRAMYCIN
     Dosage: DOSE: 130 MG TOTAL DAILY DOSE: 130 MG
     Route: 042
     Dates: start: 19950521, end: 19950521
  30. DEXAMETHASONE. [Concomitant]
     Active Substance: DEXAMETHASONE
     Dosage: DOSE: 4 MG TOTAL DAILY DOSE: 8 MG
     Route: 048
     Dates: start: 19950530, end: 19950604
  31. DEXAMETHASONE. [Concomitant]
     Active Substance: DEXAMETHASONE
     Dosage: DOSE: 10 MG TOTAL DAILY DOSE: 10 MG
     Route: 065
     Dates: start: 19950510, end: 19950510
  32. DIGOXIN. [Concomitant]
     Active Substance: DIGOXIN
     Dosage: DOSE: 0.125 MG
     Route: 048
  33. FLAGYL [Concomitant]
     Active Substance: METRONIDAZOLE\METRONIDAZOLE HYDROCHLORIDE
     Dosage: DOSE: 250 MG TOTAL DAILY DOSE: 1000 MG
     Route: 048
     Dates: start: 19950516, end: 19950524
  34. FLUCONAZOLE. [Concomitant]
     Active Substance: FLUCONAZOLE
     Dosage: DOSE: 400 MG TOTAL DAILY DOSE: 400 MG
     Route: 048
     Dates: start: 19950504, end: 19950505
  35. KAYEXALATE [Concomitant]
     Active Substance: SODIUM POLYSTYRENE SULFONATE
     Dosage: DOSE: 50 TOTAL DAILY DOSE: 50
     Route: 048
     Dates: start: 19950525, end: 19950525
  36. RIFABUTIN. [Concomitant]
     Active Substance: RIFABUTIN
     Dosage: DOSE: 300 MG TOTAL DAILY DOSE: 300 MG
     Route: 048
  37. ZOSYN [Concomitant]
     Active Substance: PIPERACILLIN SODIUM\TAZOBACTAM SODIUM
     Dosage: DOSE: 3.375 TOTAL DAILY DOSE: 6.75
     Route: 042
     Dates: start: 19950510, end: 19950516
  38. CEFTAZIDIME. [Concomitant]
     Active Substance: CEFTAZIDIME
     Dosage: DOSE: 2 TOTAL DAILY DOSE: 2
     Route: 042
     Dates: start: 19950520, end: 19950526
  39. DAPSONE. [Concomitant]
     Active Substance: DAPSONE
     Dosage: DOSE: 100 MG TOTAL DAILY DOSE: 100 MG
     Route: 048
  40. DEXAMETHASONE. [Concomitant]
     Active Substance: DEXAMETHASONE
     Dosage: DOSE: 4 MG TOTAL DAILY DOSE: 12 MG
     Route: 048
     Dates: start: 19950524, end: 19950529
  41. DEXAMETHASONE. [Concomitant]
     Active Substance: DEXAMETHASONE
     Dosage: DOSE: 1 MG TOTAL DAILY DOSE: 1 MG
     Route: 048
     Dates: start: 19950608, end: 19950609
  42. FLUCONAZOLE. [Concomitant]
     Active Substance: FLUCONAZOLE
     Dosage: DOSE: 100 MG TOTAL DAILY DOSE: 100 MG
     Route: 048
     Dates: start: 19950530
  43. VANCOMYCIN [Concomitant]
     Active Substance: VANCOMYCIN
     Dosage: DOSE: 1 TOTAL DAILY DOSE: 1
     Route: 042
     Dates: start: 19950510, end: 19950510
  44. BLOOD CELLS, PACKED HUMAN [Concomitant]
     Active Substance: HUMAN RED BLOOD CELL
     Route: 042
     Dates: start: 19950630
  45. CIPRO [Concomitant]
     Active Substance: CIPROFLOXACIN HYDROCHLORIDE
     Dosage: DOSE: 400 MG TOTAL DAILY DOSE: 400 MG
     Route: 042
     Dates: start: 19950527, end: 19950530
  46. COMPAZINE [Concomitant]
     Active Substance: PROCHLORPERAZINE MALEATE
     Dosage: DOSE: 5 MG
     Route: 058
     Dates: start: 19950601
  47. FAMOTIDINE. [Concomitant]
     Active Substance: FAMOTIDINE
     Dosage: DOSE: 20 MG TOTAL DAILY DOSE: 20 MG
     Route: 048
     Dates: start: 19950518, end: 19950519
  48. VANCOMYCIN [Concomitant]
     Active Substance: VANCOMYCIN
     Dosage: DOSE: 1 TOTAL DAILY DOSE: 1
     Route: 042
     Dates: start: 19950521, end: 19950521

REACTIONS (7)
  - Hypotension [Unknown]
  - Hypocalcaemia [Recovering/Resolving]
  - Cardiac arrest [Fatal]
  - Hypokalaemia [Recovering/Resolving]
  - Pancytopenia [Recovering/Resolving]
  - Hypophosphataemia [Not Recovered/Not Resolved]
  - Pancytopenia [Unknown]

NARRATIVE: CASE EVENT DATE: 19950510
